FAERS Safety Report 8456298-6 (Version None)
Quarter: 2012Q2

REPORT INFORMATION
  Report Type: 
  Country: None (occurrence: None)
  Receive Date: 20120621
  Receipt Date: 20120615
  Transmission Date: 20120825
  Serious: Yes (Other)
  Sender: FDA-Public Use
  Company Number: ES-ELI_LILLY_AND_COMPANY-ES201206005385

PATIENT
  Sex: Male
  Weight: 75 kg

DRUGS (4)
  1. FORTEO [Suspect]
     Indication: OSTEOPOROSIS
     Dosage: 20 UG, QD
     Route: 058
     Dates: start: 20111203
  2. OMEPRAZOLE [Concomitant]
     Dosage: 40 MG, QD
     Route: 048
  3. ZYVOX [Concomitant]
     Dosage: 600 DF, BID
  4. ACETENSIL PLUS [Concomitant]
     Indication: HYPERTENSION
     Dosage: UNK
     Route: 048

REACTIONS (1)
  - COLON CANCER [None]
